FAERS Safety Report 10219802 (Version 1)
Quarter: 2014Q1

REPORT INFORMATION
  Report Type: Spontaneous
  Country: US (occurrence: None)
  Receive Date: 20140306
  Receipt Date: 20140306
  Transmission Date: 20141002
  Serious: Yes (Other)
  Sender: FDA-Public Use
  Company Number: 163-21880-12100032

PATIENT
  Age: 75 Year
  Sex: Male
  Weight: 96.8 kg

DRUGS (12)
  1. REVLIMID (LENALIDOMIDE) (15 MILLIGRAM, CAPSULES) [Suspect]
     Indication: PLASMA CELL MYELOMA
     Dosage: 15 MG, 21 IN 21 D, PO
     Route: 048
     Dates: start: 20120723
  2. VICODIN (VICODIN) [Concomitant]
  3. TRAVATAN Z (TRAVOPROST) (DROPS) [Concomitant]
  4. DEXAMETHASONE (DEXAMETHASONE) [Concomitant]
  5. PLAVIX (CLOPIDOGREL SULFATE) [Concomitant]
  6. CRESTOR (ROSUVASTATIN) [Concomitant]
  7. CARVEDILOL (CARVEDILOL) [Concomitant]
  8. CAPTOPRIL (CAPTOPRIL) [Concomitant]
  9. AMLODIPINE (AMLODIPINE) [Concomitant]
  10. STOOL SOFTENER (DOCUSATE SODIUM) [Concomitant]
  11. ASPIRIN (ACETYLSALICYLIC ACID) [Concomitant]
  12. PEPCID (FAMOTIDINE) [Concomitant]

REACTIONS (2)
  - Gout [None]
  - Fatigue [None]
